FAERS Safety Report 10280089 (Version 1)
Quarter: 2014Q3

REPORT INFORMATION
  Report Type: Spontaneous
  Country: US (occurrence: US)
  Receive Date: 20140707
  Receipt Date: 20140707
  Transmission Date: 20150326
  Serious: Yes (Hospitalization)
  Sender: FDA-Public Use
  Company Number: US-JNJFOC-20140616957

PATIENT
  Age: 47 Year
  Sex: Female

DRUGS (3)
  1. DOXORUBICIN [Suspect]
     Active Substance: DOXORUBICIN
     Indication: SARCOMA METASTATIC
     Dosage: THREE CYCLES
     Route: 042
  2. RADIATION THERAPY NOS [Suspect]
     Active Substance: RADIATION THERAPY
     Indication: SARCOMA METASTATIC
     Dosage: 3 CYCLES
     Route: 065
  3. IFOSFAMIDE. [Suspect]
     Active Substance: IFOSFAMIDE
     Indication: SARCOMA METASTATIC
     Dosage: 3 CYCLES
     Route: 065

REACTIONS (2)
  - Off label use [Unknown]
  - Colitis [Unknown]
